FAERS Safety Report 8741670 (Version 2)
Quarter: 2012Q4

REPORT INFORMATION
  Report Type: 
  Country: US (occurrence: US)
  Receive Date: 20120824
  Receipt Date: 20121018
  Transmission Date: 20130627
  Serious: No
  Sender: FDA-Public Use
  Company Number: US-009507513-1208USA008669

PATIENT
  Sex: Male

DRUGS (1)
  1. JANUMET XR [Suspect]
     Indication: BLOOD GLUCOSE
     Dosage: UNK
     Route: 048
     Dates: start: 2012

REACTIONS (1)
  - Epistaxis [Unknown]
